FAERS Safety Report 18956830 (Version 2)
Quarter: 2021Q2

REPORT INFORMATION
  Report Type: Spontaneous
  Country: JP (occurrence: JP)
  Receive Date: 20210302
  Receipt Date: 20210428
  Transmission Date: 20210717
  Serious: Yes (Other)
  Sender: FDA-Public Use
  Company Number: JP-BRISTOL-MYERS SQUIBB COMPANY-BMS-2021-019835

PATIENT
  Age: 46 Year
  Sex: Female

DRUGS (1)
  1. OPDIVO [Suspect]
     Active Substance: NIVOLUMAB
     Indication: HEAD AND NECK CANCER
     Dosage: UNK
     Route: 041

REACTIONS (6)
  - Necrosis [Unknown]
  - Brain oedema [Recovering/Resolving]
  - Cerebrospinal fluid leakage [Unknown]
  - Soft tissue atrophy [Recovering/Resolving]
  - Skin exfoliation [Unknown]
  - Bone atrophy [Recovering/Resolving]
